FAERS Safety Report 5826851-4 (Version None)
Quarter: 2008Q3

REPORT INFORMATION
  Report Type: 
  Country: None (occurrence: None)
  Receive Date: 20080730
  Receipt Date: 20080719
  Transmission Date: 20090109
  Serious: Yes (Hospitalization)
  Sender: FDA-Public Use
  Company Number: IT-BAYER-200822967GPV

PATIENT
  Age: 30 Year
  Sex: Female

DRUGS (2)
  1. YASMIN [Suspect]
     Indication: ORAL CONTRACEPTION
     Route: 065
  2. DOMPERIDONE [Concomitant]
     Indication: ABDOMINAL PAIN
     Route: 065

REACTIONS (3)
  - ABDOMINAL PAIN [None]
  - DEEP VEIN THROMBOSIS [None]
  - THROMBOCYTHAEMIA [None]
